FAERS Safety Report 8509719-4 (Version None)
Quarter: 2012Q3

REPORT INFORMATION
  Report Type: 
  Country: None (occurrence: None)
  Receive Date: 20120713
  Receipt Date: 20120705
  Transmission Date: 20120928
  Serious: Yes (Other)
  Sender: FDA-Public Use
  Company Number: US-ASTRAZENECA-2012SE28182

PATIENT
  Age: 61 Year
  Sex: Female
  Weight: 66 kg

DRUGS (11)
  1. ASPIRIN [Concomitant]
     Route: 048
  2. CALCIUM CARBONATE [Concomitant]
     Dosage: 600 TWO TIMES DAILY
     Route: 048
  3. MULTI-VITAMIN [Concomitant]
     Route: 048
  4. NSAID [Suspect]
     Route: 065
  5. ATIVAN [Concomitant]
     Route: 048
  6. ZOCOR [Suspect]
     Route: 048
  7. FISH OIL-OMEGA-3 FATTY ACIDS [Concomitant]
     Dosage: 1 GM DAILY
     Route: 048
  8. ARIMIDEX [Suspect]
     Indication: BREAST CANCER
     Route: 048
  9. GLUCOSAMINE [Concomitant]
     Route: 048
  10. COQ10 [Concomitant]
     Route: 048
  11. OVER THE COUNTER TYLENOL [Concomitant]

REACTIONS (8)
  - ARTHRITIS [None]
  - BONE PAIN [None]
  - ASPARTATE AMINOTRANSFERASE INCREASED [None]
  - PAIN IN EXTREMITY [None]
  - ARTHRALGIA [None]
  - EXOSTOSIS [None]
  - LOWER LIMB FRACTURE [None]
  - ALANINE AMINOTRANSFERASE INCREASED [None]
